FAERS Safety Report 13117073 (Version 1)
Quarter: 2017Q1

REPORT INFORMATION
  Report Type: Report from Study
  Country: BR (occurrence: BR)
  Receive Date: 20170116
  Receipt Date: 20170116
  Transmission Date: 20170428
  Serious: Yes (Hospitalization)
  Sender: FDA-Public Use
  Company Number: PHHY2017BR004362

PATIENT
  Age: 14 Year
  Sex: Female

DRUGS (1)
  1. EXJADE [Suspect]
     Active Substance: DEFERASIROX
     Indication: SICKLE CELL ANAEMIA
     Dosage: UNK
     Route: 048

REACTIONS (5)
  - Anal haemorrhage [Unknown]
  - Abdominal distension [Unknown]
  - Malaise [Unknown]
  - Chest pain [Unknown]
  - Blood disorder [Unknown]

NARRATIVE: CASE EVENT DATE: 20170101
